FAERS Safety Report 19998503 (Version 1)
Quarter: 2021Q4

REPORT INFORMATION
  Report Type: Spontaneous
  Country: US (occurrence: US)
  Receive Date: 20211027
  Receipt Date: 20211027
  Transmission Date: 20220303
  Serious: No
  Sender: FDA-Public Use
  Company Number: 2021A773911

PATIENT
  Age: 63 Year
  Sex: Male

DRUGS (2)
  1. CRESTOR [Suspect]
     Active Substance: ROSUVASTATIN CALCIUM
     Route: 048
  2. PFIZER-BIONTECH COVID-19 VACCINE [Suspect]
     Active Substance: TOZINAMERAN
     Route: 065

REACTIONS (4)
  - Pain [Unknown]
  - Myalgia [Unknown]
  - Muscular weakness [Unknown]
  - Muscle injury [Unknown]

NARRATIVE: CASE EVENT DATE: 20210813
